FAERS Safety Report 8030140-X (Version None)
Quarter: 2011Q4

REPORT INFORMATION
  Report Type: 
  Country: None (occurrence: None)
  Receive Date: 20111130
  Receipt Date: 20110627
  Transmission Date: 20120403
  Serious: Yes (Hospitalization, Other)
  Sender: FDA-Public Use
  Company Number: US201002003766

PATIENT
  Sex: Male
  Weight: 127 kg

DRUGS (5)
  1. NEXIUM [Concomitant]
  2. EXENATIDE UNK STRENGTH PEN, DISPOSABLE DEVICE (EXENATIDE PEN (UNKNOWN [Concomitant]
  3. LANTUS [Concomitant]
  4. METFORMIN HCL [Concomitant]
  5. BYETTA [Suspect]
     Dates: start: 20070101, end: 20080430

REACTIONS (5)
  - OFF LABEL USE [None]
  - DIARRHOEA [None]
  - NAUSEA [None]
  - GALLBLADDER DISORDER [None]
  - PANCREATITIS [None]
